FAERS Safety Report 19826149 (Version 1)
Quarter: 2021Q3

REPORT INFORMATION
  Report Type: Spontaneous
  Country: US (occurrence: US)
  Receive Date: 20210910
  Receipt Date: 20210910
  Transmission Date: 20211014
  Serious: No
  Sender: FDA-Public Use
  Company Number: None

PATIENT
  Sex: Female

DRUGS (2)
  1. STELARA [Suspect]
     Active Substance: USTEKINUMAB
     Indication: PSORIASIS
     Dosage: OTHER DOSE:45MG/.5ML;OTHER FREQUENCY:ONCE EVERY 12 WEEK;?
     Route: 058
     Dates: start: 20200108
  2. STELARA [Suspect]
     Active Substance: USTEKINUMAB
     Indication: PSORIATIC ARTHROPATHY
     Dosage: OTHER DOSE:45MG/.5ML;OTHER FREQUENCY:ONCE EVERY 12 WEEK;?
     Route: 058
     Dates: start: 20200108

REACTIONS (1)
  - Therapy non-responder [None]
